FAERS Safety Report 20373675 (Version 9)
Quarter: 2022Q4

REPORT INFORMATION
  Report Type: Report from Study
  Country: CN (occurrence: CN)
  Receive Date: 20220125
  Receipt Date: 20221005
  Transmission Date: 20230113
  Serious: Yes (Hospitalization, Other)
  Sender: FDA-Public Use
  Company Number: CN-002147023-NVSC2022CN009980

PATIENT
  Age: 44 Year
  Sex: Female

DRUGS (6)
  1. PLACEBO [Suspect]
     Active Substance: UNSPECIFIED INGREDIENT
     Indication: Migraine
     Dosage: UNK
     Route: 058
     Dates: start: 20201124
  2. ERENUMAB [Suspect]
     Active Substance: ERENUMAB
     Indication: Migraine
     Dosage: 70 MG, QW4
     Route: 058
     Dates: start: 20210222, end: 20211220
  3. DICLOFENAC SODIUM [Concomitant]
     Active Substance: DICLOFENAC SODIUM
     Indication: Migraine
     Dosage: UNK
     Route: 065
     Dates: start: 20210222
  4. PIPERACILLIN AND TAZOBACTAM [Concomitant]
     Active Substance: PIPERACILLIN SODIUM\TAZOBACTAM SODIUM
     Indication: Mouth injury
     Dosage: UNK
     Route: 065
     Dates: start: 20211223, end: 20211229
  5. FERROUS SUCCINATE [Concomitant]
     Active Substance: FERROUS SUCCINATE
     Indication: Anaemia
     Dosage: UNK
     Route: 065
     Dates: start: 20211223, end: 20220109
  6. NORETHINDRONE [Concomitant]
     Active Substance: NORETHINDRONE
     Indication: Heavy menstrual bleeding
     Dosage: UNK
     Route: 065
     Dates: start: 20211214, end: 20220120

REACTIONS (1)
  - Syncope [Recovered/Resolved]

NARRATIVE: CASE EVENT DATE: 20211223
